FAERS Safety Report 11219914 (Version 1)
Quarter: 2015Q2

REPORT INFORMATION
  Report Type: Spontaneous
  Country: US (occurrence: None)
  Receive Date: 20150624
  Receipt Date: 20150624
  Transmission Date: 20150821
  Serious: Yes (Hospitalization)
  Sender: FDA-Public Use
  Company Number: 1224850-2015-00045

PATIENT
  Age: 77 Year
  Sex: Female
  Weight: 47.4 kg

DRUGS (15)
  1. CITALOPRAM [Concomitant]
     Active Substance: CITALOPRAM HYDROBROMIDE
  2. OMEPRAZOLE. [Concomitant]
     Active Substance: OMEPRAZOLE
  3. NEPHROCAP [Concomitant]
  4. CALCITRIOL. [Concomitant]
     Active Substance: CALCITRIOL
  5. DELFLEX [Concomitant]
     Active Substance: CALCIUM CHLORIDE\DEXTROSE MONOHYDRATE\MAGNESIUM CHLORIDE\SODIUM CHLORIDE\SODIUM LACTATE
  6. ALPROZOLAM [Concomitant]
     Active Substance: ALPRAZOLAM
  7. PRAVASTATIN [Concomitant]
     Active Substance: PRAVASTATIN\PRAVASTATIN SODIUM
  8. CALCIUM ACETATE. [Suspect]
     Active Substance: CALCIUM ACETATE
     Indication: HYPERPHOSPHATAEMIA
  9. CARVEDILOL. [Concomitant]
     Active Substance: CARVEDILOL
  10. INSULIN [Concomitant]
     Active Substance: INSULIN NOS
  11. TEMAZEPARIN [Concomitant]
  12. TOREMIDE [Concomitant]
  13. VITAMIN D3 [Concomitant]
     Active Substance: CHOLECALCIFEROL
  14. LIBERTY CYCLER [Concomitant]
     Active Substance: DEVICE
  15. LIBERTY CYCLER SET [Concomitant]
     Active Substance: DEVICE

REACTIONS (2)
  - Hypoglycaemia [None]
  - Mental status changes [None]

NARRATIVE: CASE EVENT DATE: 20150519
